FAERS Safety Report 8488124-3 (Version None)
Quarter: 2012Q3

REPORT INFORMATION
  Report Type: 
  Country: None (occurrence: None)
  Receive Date: 20120705
  Receipt Date: 20120625
  Transmission Date: 20120928
  Serious: Yes (Hospitalization)
  Sender: FDA-Public Use
  Company Number: US-BAYER-2011-075132

PATIENT
  Age: 29 Year
  Sex: Female

DRUGS (11)
  1. CYMBALTA [Concomitant]
     Dosage: 600 MG, DAILY
     Route: 048
     Dates: start: 20080402
  2. LORTAB [Concomitant]
     Dosage: 7.5, Q4HR
     Route: 048
  3. TPN [Concomitant]
     Dosage: 1 DAILY
     Route: 048
     Dates: start: 20080310, end: 20080603
  4. HYDROCODONE BITARTRATE [Concomitant]
  5. HYDROCODONE BITARTRATE AND ACETAMINOPHEN [Concomitant]
     Dosage: 1 TABLET EVERY 6 HOURS
     Route: 048
     Dates: start: 20080313, end: 20080510
  6. YASMIN [Suspect]
     Indication: CONTRACEPTION
     Dosage: UNK
     Dates: start: 20080101, end: 20080601
  7. YAZ [Suspect]
     Indication: CONTRACEPTION
     Dosage: UNK
     Dates: start: 20080101, end: 20080601
  8. ALPRAZOLAM [Concomitant]
     Dosage: 1 MG, BID
     Route: 048
     Dates: start: 20050313, end: 20080510
  9. PHENTERMINE [Concomitant]
     Indication: WEIGHT CONTROL
     Dosage: 30 MG, 1 OM
     Route: 048
     Dates: start: 20080313, end: 20080411
  10. IRON IN OTHER COMBINATIONS [Concomitant]
     Dosage: 1 TABLET DAILY
     Route: 048
     Dates: start: 20080310, end: 20080603
  11. XANAX [Concomitant]
     Dosage: ONE, BID
     Route: 048

REACTIONS (3)
  - PULMONARY EMBOLISM [None]
  - PAIN [None]
  - DEEP VEIN THROMBOSIS [None]
